FAERS Safety Report 8593239-5 (Version None)
Quarter: 2012Q3

REPORT INFORMATION
  Report Type: 
  Country: None (occurrence: None)
  Receive Date: 20120814
  Receipt Date: 20120803
  Transmission Date: 20120928
  Serious: No
  Sender: FDA-Public Use
  Company Number: TW-BRISTOL-MYERS SQUIBB COMPANY-16736423

PATIENT
  Age: 41 Year
  Sex: Female
  Weight: 48 kg

DRUGS (4)
  1. ABILIFY [Suspect]
     Indication: MAJOR DEPRESSION
     Dosage: 4JUN12-10JUN12 7DYS 5MG: 11JUN12-14JUN12 4DYS
     Route: 048
     Dates: start: 20120604, end: 20120614
  2. PAROXETINE HCL [Concomitant]
     Dosage: TAB
     Dates: start: 20120604, end: 20120624
  3. ESTAZOLAM [Concomitant]
     Dosage: TABS
     Dates: start: 20120121
  4. AMITRIPTYLINE HCL [Concomitant]
     Dosage: TABS
     Dates: start: 20120604, end: 20120624

REACTIONS (2)
  - BIPOLAR DISORDER [None]
  - ELEVATED MOOD [None]
